FAERS Safety Report 5689442-4 (Version None)
Quarter: 2008Q1

REPORT INFORMATION
  Report Type: 
  Country: None (occurrence: None)
  Receive Date: 20080328
  Receipt Date: 20080320
  Transmission Date: 20080703
  Serious: Yes (Other)
  Sender: FDA-Public Use
  Company Number: OSCN-PR-0803L-0163

PATIENT
  Age: 65 Year
  Sex: Male

DRUGS (1)
  1. OMNISCAN [Suspect]
     Indication: DRUG USE FOR UNKNOWN INDICATION
     Dosage: 0.13 MMOL/KG, SINGLE DOSE, I.V., 0/20 MMOL/KG, SINGLE DOSE, I.V.
     Route: 042

REACTIONS (8)
  - AORTIC VALVE DISEASE [None]
  - BACTERAEMIA [None]
  - DIALYSIS [None]
  - ENDOCARDITIS [None]
  - ENTEROCOCCAL INFECTION [None]
  - NEPHROGENIC SYSTEMIC FIBROSIS [None]
  - STAPHYLOCOCCAL INFECTION [None]
  - URINARY TRACT INFECTION [None]
